FAERS Safety Report 12857419 (Version 3)
Quarter: 2016Q4

REPORT INFORMATION
  Report Type: Spontaneous
  Country: DE (occurrence: DE)
  Receive Date: 20161018
  Receipt Date: 20161129
  Transmission Date: 20170207
  Serious: Yes (Hospitalization)
  Sender: FDA-Public Use
  Company Number: DE-BIOGEN-2016BI00304662

PATIENT
  Age: 45 Year
  Sex: Male
  Weight: 100 kg

DRUGS (2)
  1. ELOCTA [Suspect]
     Active Substance: EFMOROCTOCOG ALFA
     Route: 042
     Dates: start: 20161010
  2. ELOCTA [Suspect]
     Active Substance: EFMOROCTOCOG ALFA
     Indication: FACTOR VIII DEFICIENCY
     Dosage: EVERY 2ND DAY
     Route: 042

REACTIONS (5)
  - Haemoptysis [Unknown]
  - Cough [Unknown]
  - Influenza [Not Recovered/Not Resolved]
  - Myocarditis [Not Recovered/Not Resolved]
  - Pneumonia pneumococcal [Unknown]

NARRATIVE: CASE EVENT DATE: 20161010
